FAERS Safety Report 8504631-9 (Version None)
Quarter: 2012Q3

REPORT INFORMATION
  Report Type: 
  Country: None (occurrence: None)
  Receive Date: 20120711
  Receipt Date: 20120710
  Transmission Date: 20120928
  Serious: Yes (Life-Threatening, Hospitalization, Disabling, Other)
  Sender: FDA-Public Use
  Company Number: GB-ABBOTT-12P-167-0937831-00

PATIENT
  Sex: Male
  Weight: 53.8 kg

DRUGS (1)
  1. HUMIRA [Suspect]
     Indication: ANKYLOSING SPONDYLITIS
     Route: 058
     Dates: start: 20101101, end: 20120522

REACTIONS (9)
  - PULMONARY TUBERCULOSIS [None]
  - WEIGHT DECREASED [None]
  - EPILEPSY [None]
  - PULMONARY CAVITATION [None]
  - STATUS EPILEPTICUS [None]
  - PERICARDIAL EFFUSION [None]
  - NIGHT SWEATS [None]
  - CENTRAL NERVOUS SYSTEM LESION [None]
  - TUBERCULOSIS OF CENTRAL NERVOUS SYSTEM [None]
